FAERS Safety Report 9271235 (Version 1)
Quarter: 2013Q2

REPORT INFORMATION
  Report Type: Spontaneous
  Country: IT (occurrence: IT)
  Receive Date: 20130506
  Receipt Date: 20130506
  Transmission Date: 20140414
  Serious: Yes (Other)
  Sender: FDA-Public Use
  Company Number: IT-ELI_LILLY_AND_COMPANY-IT201304007097

PATIENT
  Age: 32 Year
  Sex: Male

DRUGS (3)
  1. CYMBALTA [Suspect]
     Indication: ANXIETY
     Dosage: 30 MG, UNK
     Route: 048
     Dates: start: 20130418, end: 20130418
  2. SYMBICORT [Concomitant]
     Route: 055
  3. VENTOLIN                                /SCH/ [Concomitant]
     Dosage: 100 UG, UNK

REACTIONS (4)
  - Loss of consciousness [Recovering/Resolving]
  - Bradyphrenia [Recovering/Resolving]
  - Vision blurred [Recovering/Resolving]
  - Insomnia [Unknown]
